FAERS Safety Report 8622387-6 (Version None)
Quarter: 2012Q3

REPORT INFORMATION
  Report Type: 
  Country: None (occurrence: None)
  Receive Date: 20120827
  Receipt Date: 20120820
  Transmission Date: 20120928
  Serious: No
  Sender: FDA-Public Use
  Company Number: US-BIOGENIDEC-2012BI032529

PATIENT
  Age: 53 Year
  Sex: Female

DRUGS (1)
  1. TYSABRI [Suspect]
     Indication: MULTIPLE SCLEROSIS
     Route: 042
     Dates: start: 20110610

REACTIONS (6)
  - HYPOAESTHESIA [None]
  - MOBILITY DECREASED [None]
  - DEAFNESS UNILATERAL [None]
  - TINNITUS [None]
  - MUSCULOSKELETAL PAIN [None]
  - SPINAL DISORDER [None]
